FAERS Safety Report 6336017-X (Version None)
Quarter: 2009Q3

REPORT INFORMATION
  Report Type: 
  Country: None (occurrence: None)
  Receive Date: 20090901
  Receipt Date: 20090824
  Transmission Date: 20100115
  Serious: Yes (Hospitalization)
  Sender: FDA-Public Use
  Company Number: US-BAYER-US-2005-013750

PATIENT
  Age: 54 Year
  Sex: Female
  Weight: 69 kg

DRUGS (17)
  1. CLIMARA [Suspect]
     Indication: MENOPAUSAL SYMPTOMS
     Dosage: .025 MG/D, CONT
     Route: 062
     Dates: start: 20010615, end: 20011001
  2. PREMARIN [Suspect]
     Indication: MENOPAUSAL SYMPTOMS
     Dosage: .625 MG, UNK
     Dates: start: 19981001, end: 20010101
  3. CYCRIN [Suspect]
     Indication: MENOPAUSAL SYMPTOMS
     Dosage: 5 AND 2.5 MG, UNK
     Dates: start: 19980428, end: 19990101
  4. PROMETRIUM [Suspect]
     Indication: MENOPAUSAL SYMPTOMS
     Dosage: 100 MG, UNK
     Dates: start: 20010615, end: 20010901
  5. ACTIVELLA [Suspect]
     Indication: MENOPAUSAL SYMPTOMS
     Dosage: UNK, UNK
     Route: 048
     Dates: start: 20011201, end: 20020401
  6. MEDROXYPROGESTERONE ACETATE [Suspect]
     Indication: MENOPAUSAL SYMPTOMS
     Dosage: 5 MG, UNK
     Dates: start: 20000115, end: 20010801
  7. PROVERA [Suspect]
     Indication: MENOPAUSAL SYMPTOMS
     Dates: start: 20000613
  8. TESTOSTERONE [Suspect]
     Indication: LIBIDO DECREASED
     Dosage: 0.5CC
     Dates: start: 20000101
  9. DHEA [Suspect]
     Indication: LIBIDO DECREASED
     Dates: start: 20000101
  10. DHEA [Suspect]
     Dates: start: 20070101
  11. ESTRIOL COMPOUND [Suspect]
     Indication: LIBIDO DECREASED
     Dosage: TOTAL DAILY DOSE: 2 MG/ML
     Route: 067
     Dates: start: 20010801
  12. REMERON [Concomitant]
     Indication: DEPRESSION
     Dosage: UNK, UNK
     Dates: start: 20040101
  13. AMBIEN [Concomitant]
     Indication: SLEEP DISORDER
     Dosage: UNK, UNK
     Route: 048
     Dates: start: 20010101
  14. CLONAZEPAM [Concomitant]
     Indication: ANXIETY
     Dosage: TOTAL DAILY DOSE: 0.75 MG  UNIT DOSE: 0.75 MG
     Route: 048
     Dates: start: 19930101
  15. TEMAZEPAM [Concomitant]
     Indication: DEPRESSION
     Dates: start: 20000613
  16. SERZONE [Concomitant]
     Indication: LIBIDO DECREASED
     Dosage: TOTAL DAILY DOSE: 150  MG
     Route: 048
     Dates: start: 20000818
  17. KLONOPIN [Concomitant]
     Indication: GENERALISED ANXIETY DISORDER
     Route: 048
     Dates: start: 20010101

REACTIONS (6)
  - ADENOMYOSIS [None]
  - BLOOD CHOLESTEROL INCREASED [None]
  - LOW DENSITY LIPOPROTEIN INCREASED [None]
  - OVARIAN GRANULOSA-THECA CELL TUMOUR [None]
  - SMEAR CERVIX ABNORMAL [None]
  - UTERINE LEIOMYOMA [None]
